FAERS Safety Report 20574298 (Version 6)
Quarter: 2022Q2

REPORT INFORMATION
  Report Type: Report from Study
  Country: JP (occurrence: JP)
  Receive Date: 20220309
  Receipt Date: 20220607
  Transmission Date: 20220721
  Serious: Yes (Hospitalization, Other)
  Sender: FDA-Public Use
  Company Number: JP-BRISTOL-MYERS SQUIBB COMPANY-BMS-2022-000578

PATIENT
  Age: 82 Year
  Sex: Male
  Weight: 55.4 kg

DRUGS (26)
  1. YERVOY [Suspect]
     Active Substance: IPILIMUMAB
     Indication: Metastatic renal cell carcinoma
     Dosage: 1 MG/KG
     Route: 041
     Dates: start: 20210323, end: 20210413
  2. YERVOY [Suspect]
     Active Substance: IPILIMUMAB
     Dosage: 1 MG/KG
     Route: 041
     Dates: start: 20210907, end: 20211005
  3. YERVOY [Suspect]
     Active Substance: IPILIMUMAB
     Route: 041
     Dates: start: 20210413, end: 20210413
  4. YERVOY [Suspect]
     Active Substance: IPILIMUMAB
     Route: 041
     Dates: start: 20211005, end: 20211005
  5. OPDIVO [Suspect]
     Active Substance: NIVOLUMAB
     Indication: Metastatic renal cell carcinoma
     Route: 041
     Dates: start: 20210323, end: 20210323
  6. OPDIVO [Suspect]
     Active Substance: NIVOLUMAB
     Dosage: ONE TIME DOSE.
     Route: 041
     Dates: start: 20210413, end: 20210413
  7. OPDIVO [Suspect]
     Active Substance: NIVOLUMAB
     Dosage: ONE TIME DOSE.
     Route: 041
     Dates: start: 20210907, end: 20210907
  8. OPDIVO [Suspect]
     Active Substance: NIVOLUMAB
     Dosage: ONE TIME DOSE.
     Route: 041
     Dates: start: 20211005, end: 20211005
  9. OPDIVO [Suspect]
     Active Substance: NIVOLUMAB
     Dosage: ONE TIME DOSE.
     Route: 041
     Dates: start: 20211102, end: 20211102
  10. OPDIVO [Suspect]
     Active Substance: NIVOLUMAB
     Dosage: ONE TIME DOSE.
     Route: 041
     Dates: start: 20211116, end: 20211116
  11. OPDIVO [Suspect]
     Active Substance: NIVOLUMAB
     Dosage: ONE TIME DOSE.
     Route: 041
     Dates: start: 20211130, end: 20211130
  12. OPDIVO [Suspect]
     Active Substance: NIVOLUMAB
     Dosage: ONE TIME DOSE.
     Route: 041
     Dates: start: 20211214, end: 20211214
  13. OPDIVO [Suspect]
     Active Substance: NIVOLUMAB
     Dosage: ONE TIME DOSE.
     Route: 041
     Dates: start: 20211228, end: 20211228
  14. OPDIVO [Suspect]
     Active Substance: NIVOLUMAB
     Dosage: ONE TIME DOSE.
     Route: 041
     Dates: start: 20220111, end: 20220111
  15. OPDIVO [Suspect]
     Active Substance: NIVOLUMAB
     Dosage: ONE TIME DOSE.
     Route: 041
     Dates: start: 20220208, end: 20220208
  16. OPDIVO [Suspect]
     Active Substance: NIVOLUMAB
     Dosage: ONE TIME DOSE.
     Route: 041
     Dates: start: 20220308, end: 20220308
  17. OPDIVO [Suspect]
     Active Substance: NIVOLUMAB
     Dosage: ONE TIME DOSE.
     Route: 041
     Dates: start: 20220405, end: 20220405
  18. PREDONINE [Suspect]
     Active Substance: PREDNISOLONE
     Indication: Immune-mediated hypophysitis
     Dosage: 20 MG, EVERYDAY
     Route: 048
     Dates: start: 20200331, end: 20210413
  19. PREDONINE [Suspect]
     Active Substance: PREDNISOLONE
     Dosage: 15 MG, EVERYDAY
     Route: 048
     Dates: start: 20210414, end: 20210430
  20. PREDONINE [Suspect]
     Active Substance: PREDNISOLONE
     Dosage: 10 MG, EVERYDAY
     Route: 048
     Dates: start: 20210501, end: 20210628
  21. PREDONINE [Suspect]
     Active Substance: PREDNISOLONE
     Dosage: 9 MG, EVERYDAY
     Route: 048
     Dates: start: 20210629, end: 20210712
  22. PREDONINE [Suspect]
     Active Substance: PREDNISOLONE
     Dosage: 8 MG, EVERYDAY
     Route: 048
     Dates: start: 20210713, end: 20210802
  23. PREDONINE [Suspect]
     Active Substance: PREDNISOLONE
     Dosage: 7 MG, EVERYDAY
     Route: 048
     Dates: start: 20210803, end: 20210824
  24. PREDONINE [Suspect]
     Active Substance: PREDNISOLONE
     Dosage: 6 MG, EVERYDAY
     Route: 048
     Dates: start: 20210825, end: 20210906
  25. PREDONINE [Suspect]
     Active Substance: PREDNISOLONE
     Dosage: 5 MG, EVERYDAY
     Route: 048
     Dates: start: 20210907, end: 20211101
  26. PREDONINE [Suspect]
     Active Substance: PREDNISOLONE
     Dosage: 4 MG, EVERYDAY
     Route: 048
     Dates: start: 20211102

REACTIONS (6)
  - Immune-mediated hypophysitis [Recovering/Resolving]
  - Cholangitis acute [Recovering/Resolving]
  - Infection [Recovering/Resolving]
  - Retinal vein occlusion [Unknown]
  - Herpes zoster [Recovering/Resolving]
  - Ileus [Recovering/Resolving]

NARRATIVE: CASE EVENT DATE: 20210330
